FAERS Safety Report 16088567 (Version 1)
Quarter: 2019Q1

REPORT INFORMATION
  Report Type: Spontaneous
  Country: US (occurrence: US)
  Receive Date: 20190319
  Receipt Date: 20190319
  Transmission Date: 20190418
  Serious: No
  Sender: FDA-Public Use
  Company Number: US-PFIZER INC-2019107418

PATIENT
  Age: 77 Year
  Sex: Female

DRUGS (2)
  1. ALPRAZOLAM. [Suspect]
     Active Substance: ALPRAZOLAM
     Dosage: TOOK DOUBLE/HAD TO TAKE 2
     Dates: start: 20190308
  2. ALPRAZOLAM. [Suspect]
     Active Substance: ALPRAZOLAM
     Indication: ANXIETY
     Dosage: 0.25 (UNIT UNKNOWN)

REACTIONS (4)
  - Heart rate increased [Unknown]
  - Vision blurred [Unknown]
  - Drug ineffective [Unknown]
  - Palpitations [Unknown]
